FAERS Safety Report 14321434 (Version 1)
Quarter: 2017Q4

REPORT INFORMATION
  Report Type: Report from Study
  Country: DE (occurrence: DE)
  Receive Date: 20171223
  Receipt Date: 20171223
  Transmission Date: 20180321
  Serious: Yes (Hospitalization)
  Sender: FDA-Public Use
  Company Number: DE-TEVA-2017-DE-836485

PATIENT
  Age: 80 Year
  Sex: Male
  Weight: 82 kg

DRUGS (25)
  1. XELODA [Suspect]
     Active Substance: CAPECITABINE
     Indication: COLORECTAL CANCER METASTATIC
     Dosage: DAILY DOSE: 2000 MG MILLIGRAM(S) EVERY 3 WEEK
     Route: 048
     Dates: start: 20160609
  2. FORTECORTIN [Concomitant]
     Active Substance: DEXAMETHASONE
     Indication: VOMITING
  3. GLIMEPIRID [Concomitant]
     Active Substance: GLIMEPIRIDE
     Indication: DIABETES MELLITUS
     Dosage: DAILY DOSE: 2 MG MILLIGRAM(S) EVERY DAY
     Route: 048
     Dates: start: 2011, end: 20151127
  4. AVASTIN [Suspect]
     Active Substance: BEVACIZUMAB
     Dosage: DAILY DOSE: 615 MG MILLIGRAM(S) EVERY 3 WEEK
     Dates: start: 20150924, end: 20150924
  5. IRINOTECAN [Concomitant]
     Active Substance: IRINOTECAN
     Dosage: DAILY DOSE: 220 MG MILLIGRAM(S) EVERY 3 WEEK
     Dates: start: 20160208, end: 20160208
  6. FORTECORTIN [Concomitant]
     Active Substance: DEXAMETHASONE
     Indication: NAUSEA
     Dosage: DAILY DOSE: 10 MG MILLIGRAM(S) EVERY 3 WEEK
     Dates: start: 20150924, end: 20160321
  7. DEXAMETHASON [Concomitant]
     Active Substance: DEXAMETHASONE
     Indication: NAUSEA
     Dosage: DAY 1 BEFORE CHEMOTHERAPY
     Dates: start: 20160413
  8. XELODA [Suspect]
     Active Substance: CAPECITABINE
     Dosage: DAILY DOSE: 3000 MG MILLIGRAM(S) EVERY 3 WEEK
     Route: 048
     Dates: start: 20150924, end: 20151118
  9. OXALIPLATIN. [Suspect]
     Active Substance: OXALIPLATIN
     Indication: COLORECTAL CANCER METASTATIC
     Dosage: DAILY DOSE: 167 MG MILLIGRAM(S) EVERY 3 WEEK
     Dates: start: 20160413, end: 20160504
  10. AVASTIN [Suspect]
     Active Substance: BEVACIZUMAB
     Indication: COLORECTAL CANCER METASTATIC
     Dosage: DAILY DOSE: 615 MG MILLIGRAM(S) EVERY 3 WEEK
     Dates: start: 20151105, end: 20151105
  11. IRINOTECAN [Concomitant]
     Active Substance: IRINOTECAN
     Dosage: DAILY DOSE: 220.8 MG MILLIGRAM(S) EVERY 3 WEEK
     Dates: start: 20160229
  12. ATROPIN [Concomitant]
     Active Substance: ATROPINE
     Indication: CHOLINERGIC SYNDROME
     Dosage: DAILY DOSE: 0.25 MG MILLIGRAM(S) EVERY 3 WEEK
     Route: 058
     Dates: start: 20150924, end: 20160321
  13. ATROPIN [Concomitant]
     Active Substance: ATROPINE
     Indication: DIARRHOEA
  14. ASPIRIN. [Concomitant]
     Active Substance: ASPIRIN
     Dosage: DAILY DOSE: 100 MG MILLIGRAM(S) EVERY DAY
     Route: 048
     Dates: start: 2001
  15. XELODA [Suspect]
     Active Substance: CAPECITABINE
     Dosage: DAILY DOSE: 2500 MG MILLIGRAM(S) EVERY 3 WEEK
     Route: 048
     Dates: start: 20160118
  16. OXALIPLATIN. [Suspect]
     Active Substance: OXALIPLATIN
     Dosage: DAILY DOSE: 120 MG MILLIGRAM(S) EVERY 3 WEEK
     Dates: start: 20160609, end: 20160609
  17. FOSINORM [Concomitant]
     Indication: HYPERTENSION
     Dosage: DAILY DOSE: 0.5 DF DOSAGE FORM EVERY DAY
     Route: 048
     Dates: start: 2001
  18. DIMENHYDRINAT [Concomitant]
     Active Substance: DIMENHYDRINATE
     Indication: VOMITING
  19. AVASTIN [Suspect]
     Active Substance: BEVACIZUMAB
     Dosage: DAILY DOSE: 495 MG MILLIGRAM(S) EVERY 3 WEEK
     Dates: start: 20160321, end: 20160413
  20. IRINOTECAN [Concomitant]
     Active Substance: IRINOTECAN
     Indication: COLORECTAL CANCER
     Dosage: DAILY DOSE: 323.2 MG MILLIGRAM(S) EVERY 3 WEEK
     Dates: start: 20150924, end: 20151105
  21. ENOXAPARIN [Concomitant]
     Active Substance: ENOXAPARIN
     Indication: THROMBOSIS
     Dosage: DAILY DOSE: 0.4 ML MILLILITRE(S) EVERY DAY
     Route: 058
     Dates: start: 20151122, end: 20151202
  22. AMLODIPIN [Concomitant]
     Active Substance: AMLODIPINE BESYLATE
     Indication: HYPERTENSION
     Dosage: DAILY DOSE: 7.5 MG MILLIGRAM(S) EVERY DAY
     Route: 048
     Dates: start: 201407
  23. SIMVASTATIN. [Concomitant]
     Active Substance: SIMVASTATIN
     Indication: HYPERCHOLESTEROLAEMIA
     Dosage: DAILY DOSE: 10 MG MILLIGRAM(S) EVERY DAY
     Route: 048
     Dates: start: 2015, end: 20151119
  24. GRANISETRON [Concomitant]
     Active Substance: GRANISETRON
     Indication: NAUSEA
     Dosage: DAY 1 BEFORE CHEMOTHERAPY
     Dates: start: 20160413
  25. KEVATRIL [Concomitant]
     Active Substance: GRANISETRON HYDROCHLORIDE
     Indication: NAUSEA
     Dosage: DAILY DOSE: 1 DF DOSAGE FORM EVERY 3 WEEK
     Dates: start: 20150924, end: 20160321

REACTIONS (7)
  - Weight decreased [Not Recovered/Not Resolved]
  - Proteinuria [Not Recovered/Not Resolved]
  - Dehydration [Recovered/Resolved]
  - Decreased appetite [Recovered/Resolved]
  - Vomiting [Recovered/Resolved]
  - Hypokalaemia [Recovered/Resolved]
  - Diarrhoea [Recovered/Resolved]

NARRATIVE: CASE EVENT DATE: 20150925
